FAERS Safety Report 7807919-X (Version None)
Quarter: 2011Q4

REPORT INFORMATION
  Report Type: 
  Country: None (occurrence: None)
  Receive Date: 20111011
  Receipt Date: 20111011
  Transmission Date: 20120403
  Serious: Yes (Hospitalization, Other)
  Sender: FDA-Public Use
  Company Number: None

PATIENT
  Age: 60 Year
  Sex: Female
  Weight: 59.42 kg

DRUGS (1)
  1. BACTRIM [Suspect]
     Indication: RASH PUSTULAR
     Dosage: 1 TABLET
     Route: 048
     Dates: start: 20110915, end: 20110919

REACTIONS (12)
  - BALANCE DISORDER [None]
  - DIZZINESS [None]
  - NAUSEA [None]
  - ASPARTATE AMINOTRANSFERASE INCREASED [None]
  - RASH [None]
  - GASTROINTESTINAL PAIN [None]
  - SYNCOPE [None]
  - ERYTHEMA [None]
  - ALANINE AMINOTRANSFERASE INCREASED [None]
  - ANXIETY [None]
  - DIARRHOEA [None]
  - HYPERPYREXIA [None]
